FAERS Safety Report 13974874 (Version 1)
Quarter: 2017Q3

REPORT INFORMATION
  Report Type: Report from Study
  Country: US (occurrence: US)
  Receive Date: 20170915
  Receipt Date: 20170915
  Transmission Date: 20171128
  Serious: Yes (Hospitalization)
  Sender: FDA-Public Use
  Company Number: US-GILEAD-2017-0293034

PATIENT
  Age: 16 Year
  Sex: Male

DRUGS (2)
  1. AZTREONAM LYSINE [Suspect]
     Active Substance: AZTREONAM LYSINE
     Dosage: 75 MG, UNK
     Route: 055
     Dates: start: 20170503, end: 201707
  2. AZTREONAM LYSINE [Suspect]
     Active Substance: AZTREONAM LYSINE
     Indication: COUGH
     Dosage: 75 MG, UNK
     Route: 055
     Dates: start: 201707

REACTIONS (3)
  - Drug dose omission [Recovered/Resolved]
  - Gastrointestinal disorder [Unknown]
  - Off label use [Not Recovered/Not Resolved]

NARRATIVE: CASE EVENT DATE: 201707
